FAERS Safety Report 14988316 (Version 1)
Quarter: 2018Q2

REPORT INFORMATION
  Report Type: Other
  Country: JP (occurrence: JP)
  Receive Date: 20180608
  Receipt Date: 20180608
  Transmission Date: 20180711
  Serious: Yes (Other)
  Sender: FDA-Public Use
  Company Number: JP-ACTELION-A-CH2018-173340

PATIENT
  Age: 81 Year
  Sex: Female

DRUGS (3)
  1. OXYGEN. [Concomitant]
     Active Substance: OXYGEN
  2. WARFARIN [Concomitant]
     Active Substance: WARFARIN
  3. BOSENTAN. [Suspect]
     Active Substance: BOSENTAN
     Indication: PULMONARY HYPERTENSION
     Route: 048

REACTIONS (5)
  - Anaemia [Not Recovered/Not Resolved]
  - Myelodysplastic syndrome [Unknown]
  - Cardiac failure [Recovering/Resolving]
  - Transfusion [Unknown]
  - Concomitant disease progression [Not Recovered/Not Resolved]
